FAERS Safety Report 11584455 (Version 3)
Quarter: 2015Q4

REPORT INFORMATION
  Report Type: Report from Study
  Country: DE (occurrence: DE)
  Receive Date: 20151001
  Receipt Date: 20151103
  Transmission Date: 20160304
  Serious: Yes (Hospitalization)
  Sender: FDA-Public Use
  Company Number: DE-BIOGENIDEC-2015BI131971

PATIENT
  Age: 48 Year
  Sex: Female

DRUGS (2)
  1. TECFIDERA [Suspect]
     Active Substance: DIMETHYL FUMARATE
     Indication: MULTIPLE SCLEROSIS
     Route: 048
     Dates: start: 20141006
  2. CITALOPRAM [Concomitant]
     Active Substance: CITALOPRAM HYDROBROMIDE
     Dates: start: 201412, end: 201503

REACTIONS (9)
  - Fatigue [Recovered/Resolved]
  - Gait disturbance [Unknown]
  - Hypersomnia [Recovered/Resolved]
  - Hypoaesthesia [Recovered/Resolved with Sequelae]
  - Personality change due to a general medical condition [Unknown]
  - Cystitis [Recovered/Resolved]
  - Muscle spasticity [Unknown]
  - Asthma [Recovered/Resolved with Sequelae]
  - Hypotonia [Unknown]

NARRATIVE: CASE EVENT DATE: 201509
